FAERS Safety Report 6587765-8 (Version None)
Quarter: 2010Q1

REPORT INFORMATION
  Report Type: 
  Country: None (occurrence: None)
  Receive Date: 20100218
  Receipt Date: 20100204
  Transmission Date: 20100710
  Serious: Yes (Other)
  Sender: FDA-Public Use
  Company Number: PHHY2010US02703

PATIENT
  Sex: Female

DRUGS (8)
  1. DIOVAN [Suspect]
     Dates: start: 20090501
  2. DIOVAN [Suspect]
  3. PLAVIX [Concomitant]
  4. ANTIBIOTICS [Concomitant]
  5. STATINS [Concomitant]
  6. ASPIRIN [Concomitant]
  7. NEXIUM [Concomitant]
  8. BYSTOLIC [Concomitant]

REACTIONS (5)
  - FEELING COLD [None]
  - PRURITUS [None]
  - RASH [None]
  - RENAL DISORDER [None]
  - STENT PLACEMENT [None]
